FAERS Safety Report 10080420 (Version 3)
Quarter: 2014Q2

REPORT INFORMATION
  Report Type: Spontaneous
  Country: US (occurrence: US)
  Receive Date: 20140416
  Receipt Date: 20140527
  Transmission Date: 20141212
  Serious: No
  Sender: FDA-Public Use
  Company Number: US-009507513-1404USA008204

PATIENT
  Sex: 0

DRUGS (1)
  1. NEXPLANON [Suspect]
     Dosage: DOSE/FREQUENCY : 1 ROD
     Route: 059

REACTIONS (2)
  - Device deployment issue [Unknown]
  - No adverse event [Unknown]
